FAERS Safety Report 5695354-2 (Version None)
Quarter: 2008Q2

REPORT INFORMATION
  Report Type: 
  Country: None (occurrence: None)
  Receive Date: 20080404
  Receipt Date: 20080327
  Transmission Date: 20081010
  Serious: Yes (Other)
  Sender: FDA-Public Use
  Company Number: US-MERCK-0801USA05346

PATIENT
  Age: 72 Year
  Sex: Male
  Weight: 85 kg

DRUGS (8)
  1. FOSAMAX [Suspect]
     Indication: OSTEOPOROSIS
     Route: 048
     Dates: start: 20050217, end: 20071020
  2. ZANTAC [Concomitant]
     Route: 065
  3. LEVOTHYROXINE SODIUM [Concomitant]
     Route: 065
  4. COUMADIN [Concomitant]
     Route: 065
  5. [THERAPY UNSPECIFIED] [Concomitant]
     Route: 065
  6. FERROUS SULFATE [Concomitant]
     Route: 065
  7. SIMETHICONE [Suspect]
     Route: 065
  8. CALCIUM (UNSPECIFIED) AND VITAMIN D (UNSPECIFIED) [Concomitant]
     Route: 065

REACTIONS (13)
  - ABDOMINAL PAIN UPPER [None]
  - BLADDER DISORDER [None]
  - CARPAL TUNNEL SYNDROME [None]
  - CEREBROVASCULAR ACCIDENT [None]
  - DIZZINESS [None]
  - FEELING ABNORMAL [None]
  - IRRITABLE BOWEL SYNDROME [None]
  - MIGRAINE [None]
  - MYALGIA [None]
  - NEUROPATHY PERIPHERAL [None]
  - RESTLESS LEGS SYNDROME [None]
  - TREMOR [None]
  - VISUAL DISTURBANCE [None]
